FAERS Safety Report 19520868 (Version 1)
Quarter: 2021Q3

REPORT INFORMATION
  Report Type: Spontaneous
  Country: GB (occurrence: GB)
  Receive Date: 20210712
  Receipt Date: 20210712
  Transmission Date: 20211014
  Serious: Yes (Other)
  Sender: FDA-Public Use
  Company Number: GB-GLAXOSMITHKLINE-GB2021GSK150577

PATIENT
  Age: 40 Year
  Sex: Female
  Weight: 70 kg

DRUGS (7)
  1. PIRINASE HAYFEVER RELIEF NASAL SPRAY [Suspect]
     Active Substance: FLUTICASONE PROPIONATE
     Indication: SEASONAL ALLERGY
     Dosage: 4 DF, QD
     Route: 045
     Dates: start: 20210621, end: 20210626
  2. QUERCETIN [Concomitant]
     Active Substance: QUERCETIN
     Indication: PRODUCT USED FOR UNKNOWN INDICATION
     Dosage: UNK
     Route: 065
     Dates: start: 20210301
  3. GLUTATHIONE [Concomitant]
     Active Substance: GLUTATHIONE
     Indication: PRODUCT USED FOR UNKNOWN INDICATION
     Dosage: UNK, (300?1000MG DAILY)
     Route: 065
     Dates: start: 20200601
  4. FEXOFENADINE HYDROCHLORIDE. [Suspect]
     Active Substance: FEXOFENADINE HYDROCHLORIDE
     Indication: SEASONAL ALLERGY
     Dosage: 180 MG, QD
     Route: 048
     Dates: start: 20210621, end: 20210628
  5. VITAMIN K2 [Concomitant]
     Active Substance: MENAQUINONE 6
     Indication: PRODUCT USED FOR UNKNOWN INDICATION
     Dosage: 180 UG, QD
     Route: 065
     Dates: start: 20201101
  6. FLUTICASONE PROPIONATE. [Concomitant]
     Active Substance: FLUTICASONE PROPIONATE
     Indication: PRODUCT USED FOR UNKNOWN INDICATION
     Dosage: UNK
     Route: 065
     Dates: start: 20200621, end: 20210626
  7. ALPHA LIPOIC ACID [Concomitant]
     Active Substance: .ALPHA.-LIPOIC ACID
     Indication: PRODUCT USED FOR UNKNOWN INDICATION
     Dosage: 300 MG
     Route: 065
     Dates: start: 20200601

REACTIONS (6)
  - Dyspnoea [Recovering/Resolving]
  - Cough [Recovering/Resolving]
  - Rhinorrhoea [Unknown]
  - Nasal discomfort [Recovered/Resolved]
  - Sneezing [Unknown]
  - Nasal pruritus [Recovered/Resolved]

NARRATIVE: CASE EVENT DATE: 20210621
